FAERS Safety Report 9068497 (Version 2)
Quarter: 2013Q1

REPORT INFORMATION
  Report Type: Report from Study
  Country: US (occurrence: US)
  Receive Date: 20130128
  Receipt Date: 20130214
  Transmission Date: 20140127
  Serious: Yes (Other)
  Sender: FDA-Public Use
  Company Number: US-ROCHE-1182689

PATIENT
  Sex: 0

DRUGS (2)
  1. BEVACIZUMAB [Suspect]
     Indication: ANGIOSARCOMA
     Dosage: IN 21-DAY CYCLES
     Route: 042
  2. BEVACIZUMAB [Suspect]
     Indication: INTRAVASCULAR PAPILLARY ENDOTHELIAL HYPERPLASIA

REACTIONS (12)
  - Thrombocytopenia [Unknown]
  - Colitis [Unknown]
  - Pain [Unknown]
  - Nausea [Unknown]
  - Infection [Unknown]
  - Headache [Unknown]
  - Anaemia [Unknown]
  - Forced expiratory volume decreased [Unknown]
  - Transient ischaemic attack [Unknown]
  - Nervous system disorder [Unknown]
  - Cardiac failure congestive [Unknown]
  - Hyperglycaemia [Unknown]
